FAERS Safety Report 23276490 (Version 1)
Quarter: 2023Q4

REPORT INFORMATION
  Report Type: Spontaneous
  Country: CN (occurrence: CN)
  Receive Date: 20231208
  Receipt Date: 20231208
  Transmission Date: 20240109
  Serious: Yes (Life-Threatening, Other)
  Sender: FDA-Public Use
  Company Number: CN-PFIZER INC-PV202300197793

PATIENT
  Age: 55 Year
  Sex: Male
  Weight: 65 kg

DRUGS (8)
  1. CYTARABINE [Suspect]
     Active Substance: CYTARABINE
     Indication: Therapeutic procedure
     Dosage: 0.25 G, 1X/DAY
     Route: 041
     Dates: start: 20231122, end: 20231123
  2. METHOTREXATE SODIUM [Suspect]
     Active Substance: METHOTREXATE SODIUM
     Indication: Therapeutic procedure
     Dosage: 1500 MG, 1X/DAY
     Route: 041
     Dates: start: 20231119, end: 20231119
  3. ETOPOSIDE [Suspect]
     Active Substance: ETOPOSIDE
     Indication: Therapeutic procedure
     Dosage: 0.11 G, 1X/DAY
     Route: 041
     Dates: start: 20231122, end: 20231123
  4. IFOSFAMIDE [Suspect]
     Active Substance: IFOSFAMIDE
     Indication: Therapeutic procedure
     Dosage: 1.3 G, 1X/DAY
     Route: 041
     Dates: start: 20231119, end: 20231123
  5. SODIUM CHLORIDE [Concomitant]
     Active Substance: SODIUM CHLORIDE
     Indication: Vehicle solution use
     Dosage: 500 ML, 1X/DAY
     Route: 041
     Dates: start: 20231119, end: 20231123
  6. SODIUM CHLORIDE [Concomitant]
     Active Substance: SODIUM CHLORIDE
     Dosage: 500 ML, 1X/DAY
     Route: 041
     Dates: start: 20231119, end: 20231119
  7. SODIUM CHLORIDE [Concomitant]
     Active Substance: SODIUM CHLORIDE
     Dosage: 500 ML, 1X/DAY
     Route: 041
     Dates: start: 20231122, end: 20231123
  8. SODIUM CHLORIDE [Concomitant]
     Active Substance: SODIUM CHLORIDE
     Indication: Vehicle solution use
     Dosage: 250 ML, 1X/DAY
     Route: 041
     Dates: start: 20231122, end: 20231123

REACTIONS (2)
  - Myelosuppression [Not Recovered/Not Resolved]
  - Septic shock [Unknown]
